FAERS Safety Report 7135002-8 (Version None)
Quarter: 2010Q4

REPORT INFORMATION
  Report Type: 
  Country: None (occurrence: None)
  Receive Date: 20101203
  Receipt Date: 20101201
  Transmission Date: 20110411
  Serious: Yes (Hospitalization)
  Sender: FDA-Public Use
  Company Number: AU-MERCK-0402AUS00148

PATIENT
  Age: 55 Year
  Sex: Male

DRUGS (3)
  1. ZOCOR [Suspect]
     Route: 048
  2. CYCLOSPORINE [Suspect]
     Indication: COMPLICATIONS OF TRANSPLANT SURGERY
     Route: 048
  3. ROXITHROMYCIN [Suspect]
     Indication: INFECTION
     Route: 048

REACTIONS (3)
  - DRUG INTERACTION [None]
  - RENAL FAILURE ACUTE [None]
  - RHABDOMYOLYSIS [None]
